FAERS Safety Report 24977302 (Version 1)
Quarter: 2025Q1

REPORT INFORMATION
  Report Type: Spontaneous
  Country: DE (occurrence: DE)
  Receive Date: 20250217
  Receipt Date: 20250217
  Transmission Date: 20250408
  Serious: Yes (Hospitalization)
  Sender: SANDOZ
  Company Number: DE-SANDOZ-SDZ2025DE008641

PATIENT
  Age: 55 Year
  Sex: Female

DRUGS (3)
  1. COSENTYX [Suspect]
     Active Substance: SECUKINUMAB
     Indication: Rheumatoid arthritis
     Dosage: 300 MG, Q4W
     Route: 065
     Dates: start: 20211012
  2. ETORICOXIB [Suspect]
     Active Substance: ETORICOXIB
     Indication: Rheumatoid arthritis
     Dosage: 60 MG, QD (7 DAYS PER WEEK)
     Route: 065
     Dates: start: 20231107
  3. METHOTREXATE [Suspect]
     Active Substance: METHOTREXATE
     Indication: Rheumatoid arthritis
     Dosage: 17.50 MG, QW
     Route: 058
     Dates: start: 20160315

REACTIONS (1)
  - Nasal valve collapse [Recovered/Resolved]

NARRATIVE: CASE EVENT DATE: 20240122
